FAERS Safety Report 6523058-2 (Version None)
Quarter: 2009Q4

REPORT INFORMATION
  Report Type: 
  Country: None (occurrence: None)
  Receive Date: 20091230
  Receipt Date: 20091106
  Transmission Date: 20100525
  Serious: No
  Sender: FDA-Public Use
  Company Number: US-TYCO HEALTHCARE/MALLINCKRODT-T200902044

PATIENT
  Sex: Female

DRUGS (1)
  1. TUSSICAPS EXTENDED-RELEASE [Suspect]
     Indication: BRONCHITIS
     Dosage: UNK
     Dates: start: 20091001, end: 20091001

REACTIONS (3)
  - LISTLESS [None]
  - SENSATION OF HEAVINESS [None]
  - SOMNOLENCE [None]
